FAERS Safety Report 12336860 (Version 1)
Quarter: 2016Q2

REPORT INFORMATION
  Report Type: Report from Study
  Country: US (occurrence: US)
  Receive Date: 20160505
  Receipt Date: 20160505
  Transmission Date: 20160815
  Serious: Yes (Other)
  Sender: FDA-Public Use
  Company Number: US-MYLANLABS-2016M1018607

PATIENT

DRUGS (3)
  1. MELPHALAN [Suspect]
     Active Substance: MELPHALAN
     Indication: CONGENITAL RETINOBLASTOMA
     Dosage: 4 INJECTION OF 30 MICROG, LATER 3 INJECTION WERE ADMINISTERED AT A DOSE OF 25 MICROG
  2. MELPHALAN [Suspect]
     Active Substance: MELPHALAN
     Dosage: 25 MICROG
  3. TOPOTECAN [Concomitant]
     Active Substance: TOPOTECAN\TOPOTECAN HYDROCHLORIDE
     Indication: CONGENITAL RETINOBLASTOMA
     Dosage: 20 MICROG

REACTIONS (5)
  - Choroidal dystrophy [Unknown]
  - Recession of chamber angle of eye [Unknown]
  - Retinal pigment epitheliopathy [Unknown]
  - Necrotising retinitis [Unknown]
  - Intraocular pressure decreased [Unknown]
